FAERS Safety Report 4307694-X (Version None)
Quarter: 2004Q1

REPORT INFORMATION
  Report Type: 
  Country: None (occurrence: None)
  Receive Date: 20040227
  Receipt Date: 20040227
  Transmission Date: 20041129
  Serious: Yes (Hospitalization)
  Sender: FDA-Public Use
  Company Number: None

PATIENT
  Age: 71 Year
  Sex: Male
  Weight: 68.0396 kg

DRUGS (9)
  1. ABCIXIMAB INJ: 2 MG/ML ELI LILLY [Suspect]
     Indication: ANTICOAGULANT THERAPY
     Dosage: 0.125MCG/KG MIN INTRAVENOUS
     Route: 042
     Dates: start: 20031105, end: 20031106
  2. IV FLUSH W/HEPARIN [Concomitant]
  3. CLOPIDIGREL [Concomitant]
  4. ASPIRIN [Concomitant]
  5. CEFAZOLIN [Concomitant]
  6. ENALAPRILAT [Concomitant]
  7. DOCUSATE SODIUM [Concomitant]
  8. QUINAPRIL HCL [Concomitant]
  9. ATORVASTATIN [Concomitant]

REACTIONS (3)
  - DRUG EFFECT DECREASED [None]
  - PETECHIAE [None]
  - THROMBOCYTOPENIA [None]
